FAERS Safety Report 8346556 (Version 4)
Quarter: 2014Q1

REPORT INFORMATION
  Report Type: Report from Study
  Country: BR (occurrence: BR)
  Receive Date: 20120120
  Receipt Date: 20140325
  Transmission Date: 20141002
  Serious: Yes (Hospitalization, Other)
  Sender: FDA-Public Use
  Company Number: BR-ROCHE-789385

PATIENT
  Sex: Female
  Weight: 50 kg

DRUGS (11)
  1. MABTHERA [Suspect]
     Indication: RHEUMATOID ARTHRITIS
     Dosage: DOSE RECEIVED ON 05-SEP-2011
     Route: 042
     Dates: start: 20110207, end: 20110919
  2. PANTOPRAZOLE [Concomitant]
     Route: 065
  3. TRAMAL [Concomitant]
     Indication: PAIN
     Dosage: FREQUENCY: WHEN THE PATIENT FEELS PAIN
     Route: 065
  4. PREDNISONE [Concomitant]
     Route: 065
  5. DOMPERIDONE [Concomitant]
     Dosage: AS NECESSARY
     Route: 065
  6. TYLENOL [Concomitant]
     Dosage: PRE-MEDICATION
     Route: 065
     Dates: start: 201102, end: 201102
  7. METHOTREXATE [Concomitant]
  8. OMEPRAZOLE [Concomitant]
  9. ANAFRANIL [Concomitant]
     Indication: DEPRESSION
  10. RIVOTRIL [Concomitant]
     Indication: INSOMNIA
  11. ROSUVASTATIN [Concomitant]

REACTIONS (9)
  - Spinal deformity [Unknown]
  - Intervertebral disc protrusion [Unknown]
  - Reflux gastritis [Recovering/Resolving]
  - Spinal pain [Not Recovered/Not Resolved]
  - Gastritis [Recovering/Resolving]
  - Nasopharyngitis [Unknown]
  - Sinusitis [Unknown]
  - Somnolence [Unknown]
  - Viral infection [Unknown]
